FAERS Safety Report 4365111-8 (Version None)
Quarter: 2004Q2

REPORT INFORMATION
  Report Type: 
  Country: None (occurrence: None)
  Receive Date: 20040521
  Receipt Date: 20040517
  Transmission Date: 20050107
  Serious: Yes (Death, Life-Threatening)
  Sender: FDA-Public Use
  Company Number: D01200401745

PATIENT
  Age: 87 Year
  Sex: Female

DRUGS (22)
  1. OXALIPLATIN [Suspect]
     Indication: CHEMOTHERAPY NEUROTOXICITY ATTENUATION
     Dosage: 1 MG QD,
     Route: 042
     Dates: start: 20040309, end: 20040427
  2. FLUOROURACIL [Suspect]
     Dosage: 400 MG/M2 AS IV BOLUS THEN 600 MG/M2 AS 22 HOURS CONTINUOUS INFUSION D1-D2, Q2W
     Route: 042
     Dates: start: 20040406, end: 20040406
  3. (SR57746 OR PLACEBO) - CAPSULE - 1 MG [Suspect]
     Dosage: 400 MG/M2 AS IV BOLUS THEN 600 MG/M2 AS 22 HOURS CONTINUOUS INFUSION D1-D2 Q2W
     Route: 042
     Dates: start: 20040406, end: 20040407
  4. LEUCOVORIN CALCIUM [Suspect]
     Dosage: 200 MG/M2 AS 2 HOURS INFUSION ON D1-D2 Q2W
     Route: 042
     Dates: start: 20040406, end: 20040407
  5. PRITOR (TELMISARTAN) [Concomitant]
  6. SECTRAL [Concomitant]
  7. SPIRONOLACTONE [Concomitant]
  8. NITRIDERM (GLYCERYL TRINITRATE) [Concomitant]
  9. OMEPRAZOLE [Concomitant]
  10. ASPIRIN [Concomitant]
  11. LACTULOSE [Concomitant]
  12. IMOVANE (ZOPICLONE) [Concomitant]
  13. FERROUS SULFATE TAB [Concomitant]
  14. ARANESP [Concomitant]
  15. FURANDOTOINE (NITROFURANTOIN) [Concomitant]
  16. SOLU-MEDROL [Concomitant]
  17. PRIMPERAN TAB [Concomitant]
  18. ONDANSETRON HYDROCHLORIDE [Concomitant]
  19. NEUPOGEN [Concomitant]
  20. FORLAX (MACROGOL) [Concomitant]
  21. NOROXIN [Concomitant]
  22. MALTOFER (FERRIC HYDROXIDE POLYMALTOSE COMPLEX) [Concomitant]

REACTIONS (9)
  - BLOOD ALKALINE PHOSPHATASE INCREASED [None]
  - C-REACTIVE PROTEIN INCREASED [None]
  - GENERAL PHYSICAL HEALTH DETERIORATION [None]
  - LEUKOPENIA [None]
  - LUNG INFECTION [None]
  - MALIGNANT NEOPLASM PROGRESSION [None]
  - NEUTROPENIA [None]
  - PLATELET COUNT DECREASED [None]
  - PYREXIA [None]
